FAERS Safety Report 12718163 (Version 2)
Quarter: 2016Q3

REPORT INFORMATION
  Report Type: Spontaneous
  Country: JP (occurrence: JP)
  Receive Date: 20160906
  Receipt Date: 20160912
  Transmission Date: 20161109
  Serious: Yes (Other)
  Sender: FDA-Public Use
  Company Number: JP-JNJFOC-20160903246

PATIENT
  Age: 91 Year
  Sex: Female

DRUGS (1)
  1. TRAMCET [Suspect]
     Active Substance: ACETAMINOPHEN\TRAMADOL
     Indication: PRODUCT USED FOR UNKNOWN INDICATION
     Route: 048

REACTIONS (9)
  - Restlessness [Unknown]
  - Overdose [Unknown]
  - Insomnia [Unknown]
  - Confusional state [Unknown]
  - Dementia [Unknown]
  - Psychiatric symptom [Unknown]
  - Anxiety [Unknown]
  - Agitation [Unknown]
  - Delirium [Unknown]
